FAERS Safety Report 24161810 (Version 1)
Quarter: 2024Q3

REPORT INFORMATION
  Report Type: Spontaneous
  Country: FR (occurrence: FR)
  Receive Date: 20240801
  Receipt Date: 20240801
  Transmission Date: 20241016
  Serious: Yes (Other)
  Sender: GLAXOSMITHKLINE
  Company Number: None

PATIENT

DRUGS (1)
  1. ZEJULA [Suspect]
     Active Substance: NIRAPARIB
     Indication: Ovarian cancer
     Dosage: 200 MG, QD
     Route: 048
     Dates: start: 20240427, end: 20240513

REACTIONS (3)
  - Oesophageal pain [Recovered/Resolved]
  - Mucosal inflammation [Recovered/Resolved]
  - Pancytopenia [Recovering/Resolving]

NARRATIVE: CASE EVENT DATE: 20240507
